FAERS Safety Report 7495199-7 (Version None)
Quarter: 2011Q2

REPORT INFORMATION
  Report Type: 
  Country: None (occurrence: None)
  Receive Date: 20110520
  Receipt Date: 20110512
  Transmission Date: 20111010
  Serious: Yes (Other)
  Sender: FDA-Public Use
  Company Number: US-GENENTECH-318913

PATIENT
  Sex: Female

DRUGS (2)
  1. XOLAIR [Suspect]
     Indication: ASTHMA
     Dosage: 225 MG, Q2W
     Dates: start: 20090101
  2. XOLAIR [Suspect]
     Dosage: UNK
     Dates: start: 20110101

REACTIONS (2)
  - DEAFNESS UNILATERAL [None]
  - EAR PAIN [None]
